FAERS Safety Report 24443500 (Version 2)
Quarter: 2024Q4

REPORT INFORMATION
  Report Type: Report from Study
  Country: US (occurrence: US)
  Receive Date: 20241016
  Receipt Date: 20241017
  Transmission Date: 20250115
  Serious: No
  Sender: ROCHE
  Company Number: US-ROCHE-2093181

PATIENT
  Age: 23 Year
  Sex: Female

DRUGS (4)
  1. RITUXAN [Suspect]
     Active Substance: RITUXIMAB
     Indication: Connective tissue disorder
     Dosage: DATE OF SERVICE:19/MAR/2018, 11/JUN/2020, 26/JUN/2020, 26/MAY/2021,12/JAN/2022, 26/JAN/2022, 02/SEP/
     Route: 041
     Dates: start: 20180305
  2. RITUXAN [Suspect]
     Active Substance: RITUXIMAB
     Indication: Demyelination
  3. RITUXAN [Suspect]
     Active Substance: RITUXIMAB
     Indication: Encephalitis
  4. RITUXAN [Suspect]
     Active Substance: RITUXIMAB
     Indication: Encephalomyelitis

REACTIONS (2)
  - Off label use [Unknown]
  - No adverse event [Unknown]
